FAERS Safety Report 5159465-2 (Version None)
Quarter: 2006Q4

REPORT INFORMATION
  Report Type: 
  Country: None (occurrence: None)
  Receive Date: 20061122
  Receipt Date: 20061122
  Transmission Date: 20070319
  Serious: Yes (Hospitalization)
  Sender: FDA-Public Use
  Company Number: None

PATIENT
  Age: 35 Year
  Sex: Female

DRUGS (1)
  1. HABITROL [Suspect]
     Dosage: 21MG DAILY CUTANEOUS
     Route: 003
     Dates: start: 20060817, end: 20060825

REACTIONS (1)
  - RASH [None]
